FAERS Safety Report 7202341-1 (Version None)
Quarter: 2010Q4

REPORT INFORMATION
  Report Type: 
  Country: None (occurrence: None)
  Receive Date: 20101229
  Receipt Date: 20101210
  Transmission Date: 20110411
  Serious: No
  Sender: FDA-Public Use
  Company Number: US-PFIZER INC-2010170529

PATIENT
  Sex: Female

DRUGS (3)
  1. LIPITOR [Suspect]
  2. ZOCOR [Concomitant]
  3. LESCOL [Concomitant]
     Dosage: UNK
     Dates: start: 20100801

REACTIONS (1)
  - MYALGIA [None]
